FAERS Safety Report 24068240 (Version 1)
Quarter: 2024Q3

REPORT INFORMATION
  Report Type: Spontaneous
  Country: ES (occurrence: ES)
  Receive Date: 20240710
  Receipt Date: 20240710
  Transmission Date: 20241017
  Serious: Yes (Other)
  Sender: NOVARTIS
  Company Number: ES-002147023-NVSC2024ES140165

PATIENT

DRUGS (3)
  1. LUTATHERA [Suspect]
     Active Substance: LUTETIUM OXODOTREOTIDE LU-177
     Indication: Product used for unknown indication
     Dosage: 7.4 MBQ, (EVERY 8 WEEK)
     Route: 065
     Dates: start: 20220112, end: 20220720
  2. AMINO ACIDS, SOURCE UNSPECIFIED [Concomitant]
     Active Substance: AMINO ACIDS, SOURCE UNSPECIFIED
     Indication: Product used for unknown indication
     Dosage: UNK, (OVER 4 HOURS, STARTING 30 MIN PRIOR  TO START OF LUTATHERA INFUSION)
     Route: 042
  3. OCTREOTIDE [Concomitant]
     Active Substance: OCTREOTIDE\OCTREOTIDE ACETATE
     Indication: Product used for unknown indication
     Dosage: UNK, (5-6 TIMES A  DAY)
     Route: 065

REACTIONS (10)
  - Hepatotoxicity [Unknown]
  - Myelosuppression [Unknown]
  - Pancytopenia [Unknown]
  - Carcinoid syndrome [Unknown]
  - Diarrhoea [Unknown]
  - Flushing [Unknown]
  - Dyspnoea [Unknown]
  - Abdominal pain upper [Unknown]
  - Asthenia [Unknown]
  - Decreased appetite [Unknown]

NARRATIVE: CASE EVENT DATE: 20230601
